FAERS Safety Report 19490350 (Version 1)
Quarter: 2021Q3

REPORT INFORMATION
  Report Type: Spontaneous
  Country: FR (occurrence: FR)
  Receive Date: 20210705
  Receipt Date: 20210705
  Transmission Date: 20211014
  Serious: Yes (Life-Threatening, Other)
  Sender: FDA-Public Use
  Company Number: FR-AUROBINDO-AUR-APL-2018-024801

PATIENT
  Age: 56 Year
  Sex: Male
  Weight: 78 kg

DRUGS (7)
  1. ALKERAN [Suspect]
     Active Substance: MELPHALAN
     Indication: DIFFUSE LARGE B-CELL LYMPHOMA STAGE IV
     Dosage: 140 MILLIGRAM/SQ. METER, IN TOTAL
     Route: 041
     Dates: start: 20130709, end: 20130709
  2. ZEVALIN [Suspect]
     Active Substance: IBRITUMOMAB TIUXETAN
     Indication: DIFFUSE LARGE B-CELL LYMPHOMA STAGE IV
     Dosage: UNK
     Route: 041
     Dates: start: 20130626, end: 20130626
  3. BICNU [Suspect]
     Active Substance: CARMUSTINE
     Indication: DIFFUSE LARGE B-CELL LYMPHOMA STAGE IV
     Dosage: 300 MILLIGRAM/SQ. METER, IN TOTAL
     Route: 041
     Dates: start: 20130704, end: 20130704
  4. MABTHERA [Suspect]
     Active Substance: RITUXIMAB
     Indication: DIFFUSE LARGE B-CELL LYMPHOMA STAGE IV
     Dosage: 250 MILLIGRAM/SQ. METER, IN TOTAL
     Route: 041
     Dates: start: 20130626, end: 20130626
  5. ETOPOSIDE. [Suspect]
     Active Substance: ETOPOSIDE
     Indication: DIFFUSE LARGE B-CELL LYMPHOMA STAGE IV
     Dosage: 400 MILLIGRAM/SQ. METER, ONCE A DAY
     Route: 041
     Dates: start: 20130705, end: 20130708
  6. OXALIPLATIN ACCORD [Suspect]
     Active Substance: OXALIPLATIN
     Indication: DIFFUSE LARGE B-CELL LYMPHOMA STAGE IV
     Dosage: 130 MILLIGRAM/SQ. METER, CYCLICAL
     Route: 041
     Dates: start: 20130405, end: 20130605
  7. CYTARABINE. [Suspect]
     Active Substance: CYTARABINE
     Indication: DIFFUSE LARGE B-CELL LYMPHOMA STAGE IV
     Dosage: 400 MILLIGRAM/SQ. METER, ONCE A DAY
     Route: 041
     Dates: start: 20130705, end: 20130708

REACTIONS (1)
  - Venoocclusive liver disease [Recovered/Resolved]

NARRATIVE: CASE EVENT DATE: 20130718
